FAERS Safety Report 13270550 (Version 2)
Quarter: 2017Q1

REPORT INFORMATION
  Report Type: Report from Study
  Country: GB (occurrence: GB)
  Receive Date: 20170224
  Receipt Date: 20170306
  Transmission Date: 20170428
  Serious: Yes (Hospitalization)
  Sender: FDA-Public Use
  Company Number: GB-BAUSCH-BL-2017-004541

PATIENT
  Age: 70 Year
  Sex: Male
  Weight: 86.5 kg

DRUGS (20)
  1. PERINDOPRIL [Concomitant]
     Active Substance: PERINDOPRIL
     Indication: ESSENTIAL HYPERTENSION
     Route: 048
  2. GABAPENTIN. [Suspect]
     Active Substance: GABAPENTIN
     Indication: NECK PAIN
     Route: 041
  3. REVLIMID [Suspect]
     Active Substance: LENALIDOMIDE
     Dosage: REDUCED DOSE
     Route: 048
     Dates: start: 20160528
  4. COTRIMOXAZOLE [Concomitant]
     Active Substance: SULFAMETHOXAZOLE\TRIMETHOPRIM
     Indication: ANTIFUNGAL PROPHYLAXIS
     Route: 048
     Dates: start: 20160204
  5. ORAMORPH [Concomitant]
     Active Substance: MORPHINE SULFATE
     Indication: PAIN
     Route: 048
  6. REVLIMID [Suspect]
     Active Substance: LENALIDOMIDE
     Indication: PLASMA CELL MYELOMA
     Route: 048
     Dates: start: 20160106, end: 20160506
  7. AMLODIPINE [Concomitant]
     Active Substance: AMLODIPINE BESYLATE
     Indication: ESSENTIAL HYPERTENSION
     Route: 048
  8. FUROSEMIDE. [Concomitant]
     Active Substance: FUROSEMIDE
     Indication: OEDEMA PERIPHERAL
     Route: 048
     Dates: start: 20160210
  9. CLEXANE [Concomitant]
     Active Substance: ENOXAPARIN SODIUM
     Indication: THROMBOSIS PROPHYLAXIS
     Route: 058
     Dates: start: 20160106
  10. LANSOPRAZOLE. [Concomitant]
     Active Substance: LANSOPRAZOLE
     Route: 048
  11. OXYCODONE [Concomitant]
     Active Substance: OXYCODONE
     Indication: PAIN
     Route: 048
  12. ZAPAIN [Concomitant]
     Active Substance: ACETAMINOPHEN\CODEINE PHOSPHATE
     Indication: PAIN
     Route: 048
  13. SUSTANON [Concomitant]
     Active Substance: TESTOSTERONE DECANOATE\TESTOSTERONE ISOCAPROATE\TESTOSTERONE PHENYLPROPIONATE\TESTOSTERONE PROPIONATE
     Indication: PITUITARY TUMOUR BENIGN
     Route: 058
  14. THYROXINE [Concomitant]
     Active Substance: LEVOTHYROXINE
     Indication: SECONDARY HYPOTHYROIDISM
     Route: 048
  15. HYDROCORTISONE. [Concomitant]
     Active Substance: HYDROCORTISONE
     Indication: PITUITARY TUMOUR BENIGN
     Route: 048
     Dates: start: 1981
  16. DEXAMETHASONE. [Suspect]
     Active Substance: DEXAMETHASONE
     Indication: PLASMA CELL MYELOMA
     Dosage: ON DAYS 1, 8, 15 AND 22 DAYS OF EACH CYCLE
     Route: 048
     Dates: start: 20160106, end: 20160505
  17. ACICLOVIR [Concomitant]
     Active Substance: ACYCLOVIR
     Indication: ANTIVIRAL PROPHYLAXIS
     Route: 048
     Dates: start: 20160106
  18. LANSOPRAZOLE. [Concomitant]
     Active Substance: LANSOPRAZOLE
     Indication: GASTROINTESTINAL DISORDER THERAPY
     Route: 048
  19. LEVOTHYROXINE. [Concomitant]
     Active Substance: LEVOTHYROXINE
     Indication: SECONDARY HYPOTHYROIDISM
     Route: 048
  20. OXYNORM [Concomitant]
     Active Substance: OXYCODONE HYDROCHLORIDE
     Indication: PAIN
     Route: 048

REACTIONS (1)
  - Constipation [Recovered/Resolved]

NARRATIVE: CASE EVENT DATE: 20160507
